FAERS Safety Report 19427937 (Version 1)
Quarter: 2021Q2

REPORT INFORMATION
  Report Type: Spontaneous
  Country: US (occurrence: US)
  Receive Date: 20210616
  Receipt Date: 20210616
  Transmission Date: 20210717
  Serious: Yes (Death, Hospitalization)
  Sender: FDA-Public Use
  Company Number: None

PATIENT
  Age: 58 Year
  Sex: Male
  Weight: 99 kg

DRUGS (13)
  1. CYMBALTA [Concomitant]
     Active Substance: DULOXETINE HYDROCHLORIDE
  2. PROMETHAZINE [Concomitant]
     Active Substance: PROMETHAZINE HYDROCHLORIDE
  3. LORATADINE. [Concomitant]
     Active Substance: LORATADINE
  4. HYDROMORPHONE [Concomitant]
     Active Substance: HYDROMORPHONE
  5. DIPHENHYDRAMINE. [Concomitant]
     Active Substance: DIPHENHYDRAMINE
  6. PAMOATE [Concomitant]
  7. HYDROMORPHONE 4MG SYRINGE [Concomitant]
  8. NARCAN [Suspect]
     Active Substance: NALOXONE HYDROCHLORIDE
     Indication: DRUG THERAPY
  9. OMEPRAZOLE. [Concomitant]
     Active Substance: OMEPRAZOLE
  10. DOCUSATE SODIUM. [Concomitant]
     Active Substance: DOCUSATE SODIUM
  11. HYDROXYZINE [Concomitant]
     Active Substance: HYDROXYZINE HYDROCHLORIDE
  12. TADALAFIL. [Concomitant]
     Active Substance: TADALAFIL
  13. CYCLOBENZAPRINE. [Concomitant]
     Active Substance: CYCLOBENZAPRINE

REACTIONS (4)
  - Cardiac arrest [None]
  - Aspiration [None]
  - Heart rate decreased [None]
  - Vomiting [None]

NARRATIVE: CASE EVENT DATE: 20210331
